FAERS Safety Report 17292305 (Version 1)
Quarter: 2020Q1

REPORT INFORMATION
  Report Type: Spontaneous
  Country: CN (occurrence: CN)
  Receive Date: 20200121
  Receipt Date: 20200121
  Transmission Date: 20200409
  Serious: Yes (Other)
  Sender: FDA-Public Use
  Company Number: CN-BAYER-2019-228551

PATIENT
  Age: 61 Year
  Sex: Female
  Weight: 58 kg

DRUGS (1)
  1. IOPROMIDE. [Suspect]
     Active Substance: IOPROMIDE
     Indication: COMPUTERISED TOMOGRAM CORONARY ARTERY
     Dosage: 60 ML, ONCE
     Route: 042
     Dates: start: 20191205, end: 20191205

REACTIONS (12)
  - Contrast media allergy [Recovered/Resolved]
  - Wheezing [Recovered/Resolved]
  - Circumoral swelling [Recovered/Resolved]
  - Nasal obstruction [Recovered/Resolved]
  - Rhinorrhoea [Recovered/Resolved]
  - Sneezing [Recovered/Resolved]
  - Hypoaesthesia oral [Recovered/Resolved]
  - Lip discolouration [Recovered/Resolved]
  - Depressed mood [Recovered/Resolved]
  - Chest discomfort [Recovered/Resolved]
  - Suffocation feeling [Recovered/Resolved]
  - Rash pruritic [Recovered/Resolved]

NARRATIVE: CASE EVENT DATE: 20191205
